FAERS Safety Report 9521709 (Version 1)
Quarter: 2013Q3

REPORT INFORMATION
  Report Type: Spontaneous
  Country: CA (occurrence: None)
  Receive Date: 20130911
  Receipt Date: 20130911
  Transmission Date: 20140515
  Serious: Yes (Hospitalization)
  Sender: FDA-Public Use
  Company Number: 2013000020

PATIENT
  Sex: Female

DRUGS (1)
  1. ACEON [Suspect]
     Route: 048
     Dates: start: 2012, end: 2013

REACTIONS (1)
  - Anaphylactic reaction [None]
